FAERS Safety Report 9150083 (Version 1)
Quarter: 2013Q1

REPORT INFORMATION
  Report Type: Spontaneous
  Country: US (occurrence: US)
  Receive Date: 20130308
  Receipt Date: 20130308
  Transmission Date: 20140127
  Serious: Yes (Hospitalization, Other)
  Sender: FDA-Public Use
  Company Number: PHEH2013US004801

PATIENT
  Age: 43 Year
  Sex: Female
  Weight: 70.66 kg

DRUGS (21)
  1. RITALIN [Suspect]
     Indication: COMPULSIONS
     Dosage: 50 MG, QD
     Dates: end: 2012
  2. SABRIL [Suspect]
     Indication: COMPLEX PARTIAL SEIZURES
     Dosage: 1000 MG, TID
     Route: 048
     Dates: start: 20120404
  3. SABRIL [Suspect]
     Dosage: 1500 MG, TID
     Route: 048
  4. SABRIL [Suspect]
     Dosage: 500 MG, BID
     Dates: start: 201205
  5. SABRIL [Suspect]
     Dosage: UNK UKN, UNK
     Dates: start: 20120827, end: 201210
  6. COFFEE COAL [Concomitant]
     Indication: COMPULSIONS
  7. VIMPAT [Concomitant]
     Indication: EPILEPSY
     Dosage: 100 MG, DAILY
     Route: 048
  8. VIMPAT [Concomitant]
     Dosage: 100 MG, 2.00 PM, DAILY
     Route: 048
  9. VIMPAT [Concomitant]
     Dosage: 100 MG, DAILY
     Route: 048
  10. VIMPAT [Concomitant]
     Dosage: 100 MG (50 MG 2 IN 1 DAY), DAILY
     Route: 048
     Dates: start: 20120926
  11. TOPAMAX [Concomitant]
     Indication: EPILEPSY
     Dosage: 100 MG, HS, DAILY
     Route: 048
  12. TOPAMAX [Concomitant]
     Dosage: 100 MG, AM, UNK
     Route: 048
  13. TOPAMAX [Concomitant]
     Dosage: 100 MG, 2.00 PM, UNK
     Route: 048
  14. TOPAMAX [Concomitant]
     Dosage: 200 MG, HS, UNK
     Route: 048
  15. TOPAMAX [Concomitant]
     Dosage: 150 MG, HS, UNK
     Route: 048
     Dates: start: 20120712
  16. ATIVAN [Concomitant]
     Indication: CONVULSION
     Dosage: 0.5 MG, (AS NEEDED FOR AURA OR SEIZURES): UNK
     Route: 048
  17. ATIVAN [Concomitant]
     Indication: AURA
     Dosage: 1 MG, PRN
     Route: 048
  18. METHADONE [Concomitant]
     Dosage: 2 DF, DAILY
  19. SYNTHROID [Concomitant]
     Dosage: UNK
  20. DIAZEPAM ^APS^ [Concomitant]
     Dosage: 5 MG, HS, UNK
  21. LAMICTAL [Concomitant]
     Indication: MOOD ALTERED
     Dosage: 50 MG, AM, UNK
     Route: 048

REACTIONS (25)
  - Renal failure acute [Unknown]
  - Metabolic encephalopathy [Unknown]
  - Night blindness [Unknown]
  - Compulsions [Unknown]
  - Suicide attempt [Unknown]
  - Deafness unilateral [Unknown]
  - Visual impairment [Unknown]
  - Somnambulism [Unknown]
  - Nocturia [Unknown]
  - Balance disorder [Unknown]
  - Muscular weakness [Unknown]
  - Fall [Unknown]
  - Paranoia [Unknown]
  - Dyspepsia [Unknown]
  - Anxiety [Unknown]
  - Delusion [Unknown]
  - Convulsion [Unknown]
  - Hallucination, visual [Unknown]
  - Attention deficit/hyperactivity disorder [Unknown]
  - Pleural fibrosis [Unknown]
  - Kyphosis [Unknown]
  - Confusional state [Unknown]
  - Abdominal discomfort [Unknown]
  - Incorrect dose administered [Unknown]
  - Headache [Unknown]
